FAERS Safety Report 6850998-7 (Version None)
Quarter: 2010Q3

REPORT INFORMATION
  Report Type: 
  Country: None (occurrence: None)
  Receive Date: 20100716
  Receipt Date: 20100705
  Transmission Date: 20110219
  Serious: Yes (Hospitalization, Other)
  Sender: FDA-Public Use
  Company Number: FR-ELI_LILLY_AND_COMPANY-FR201007000837

PATIENT
  Sex: Female

DRUGS (5)
  1. ALIMTA [Suspect]
     Indication: PERITONEAL MESOTHELIOMA MALIGNANT
     Dosage: 825 MG, EVERY 3 MONTHS
     Route: 042
     Dates: start: 20100203, end: 20100308
  2. CARBOPLATIN [Concomitant]
     Indication: PERITONEAL MESOTHELIOMA MALIGNANT
     Dosage: 320 MG, EVERY 3 WEEKS
     Route: 042
     Dates: start: 20100203, end: 20100308
  3. CETUXIMAB [Concomitant]
     Dosage: UNK, UNKNOWN
     Route: 065
  4. LERCAN [Concomitant]
     Dosage: UNK, UNKNOWN
     Route: 065
  5. ACETAMINOPHEN [Concomitant]
     Dosage: UNK, AS NEEDED
     Route: 065

REACTIONS (9)
  - APHTHOUS STOMATITIS [None]
  - ASTHENIA [None]
  - BONE MARROW FAILURE [None]
  - DEEP VEIN THROMBOSIS [None]
  - DIARRHOEA [None]
  - NAUSEA [None]
  - PYREXIA [None]
  - RENAL FAILURE [None]
  - VOMITING [None]
